FAERS Safety Report 8540695-4 (Version None)
Quarter: 2012Q3

REPORT INFORMATION
  Report Type: 
  Country: None (occurrence: None)
  Receive Date: 20120726
  Receipt Date: 20120717
  Transmission Date: 20120928
  Serious: Yes (Other)
  Sender: FDA-Public Use
  Company Number: SE-JNJFOC-20120708458

PATIENT
  Sex: Female

DRUGS (7)
  1. KALCIPOS D [Concomitant]
     Dosage: 500 MG/400 IE
     Route: 048
  2. IBUMETIN [Concomitant]
     Route: 048
  3. REMICADE [Suspect]
     Indication: SARCOIDOSIS
     Route: 042
  4. OMEPRAZOLE [Concomitant]
     Route: 065
  5. REMICADE [Suspect]
     Route: 042
     Dates: end: 20120511
  6. PREDNISOLONE [Concomitant]
     Route: 065
  7. AZATHIOPRINE [Concomitant]
     Route: 065

REACTIONS (1)
  - RESPIRATORY FAILURE [None]
